FAERS Safety Report 6517336-0 (Version None)
Quarter: 2009Q4

REPORT INFORMATION
  Report Type: 
  Country: None (occurrence: None)
  Receive Date: 20091223
  Receipt Date: 20091210
  Transmission Date: 20100525
  Serious: Yes (Death)
  Sender: FDA-Public Use
  Company Number: JP-PFIZER INC-2009298646

PATIENT
  Sex: Male
  Weight: 55.2 kg

DRUGS (14)
  1. SILDENAFIL CITRATE [Suspect]
     Dosage: UNK
     Route: 048
     Dates: start: 20091018, end: 20091112
  2. RENIVACE [Concomitant]
     Dosage: UNK
     Route: 048
     Dates: end: 20091111
  3. LASIX [Concomitant]
     Dosage: UNK
     Route: 048
     Dates: end: 20091111
  4. TORASEMIDE [Concomitant]
     Dosage: UNK
     Route: 048
     Dates: end: 20091111
  5. PIMOBENDAN [Concomitant]
     Dosage: UNK
     Route: 048
     Dates: end: 20091111
  6. ALOSITOL [Concomitant]
     Dosage: UNK
     Route: 048
     Dates: end: 20091111
  7. FERROMIA [Concomitant]
     Dosage: UNK
     Route: 048
     Dates: end: 20091111
  8. GASTER [Concomitant]
     Dosage: UNK
     Route: 048
     Dates: end: 20091111
  9. GANATON [Concomitant]
     Dosage: UNK
     Route: 048
     Dates: end: 20091111
  10. CEREKINON [Concomitant]
     Dosage: UNK
     Route: 048
     Dates: end: 20091111
  11. GASCON [Concomitant]
     Dosage: UNK
     Route: 048
     Dates: end: 20091111
  12. PRIMPERAN TAB [Concomitant]
     Dosage: UNK
     Route: 048
     Dates: end: 20091111
  13. DEPAS [Concomitant]
     Dosage: UNK
     Route: 048
     Dates: end: 20091111
  14. MAG-LAX [Concomitant]
     Dosage: UNK
     Route: 048
     Dates: end: 20091111

REACTIONS (1)
  - CARDIAC FAILURE CONGESTIVE [None]
